FAERS Safety Report 10083783 (Version 1)
Quarter: 2014Q2

REPORT INFORMATION
  Report Type: Spontaneous
  Country: US (occurrence: None)
  Receive Date: 20140416
  Receipt Date: 20140416
  Transmission Date: 20141212
  Serious: Yes (Hospitalization)
  Sender: FDA-Public Use
  Company Number: None

PATIENT
  Age: 54 Year
  Sex: Female
  Weight: 62.14 kg

DRUGS (2)
  1. CARBOPLATIN [Suspect]
  2. PACLITAXEL (TAXOL) [Suspect]

REACTIONS (7)
  - Blood creatinine increased [None]
  - Hydronephrosis [None]
  - Tachycardia [None]
  - Pyrexia [None]
  - Tachypnoea [None]
  - Blood culture positive [None]
  - Enterococcal infection [None]
